FAERS Safety Report 8889134 (Version 2)
Quarter: 2012Q4

REPORT INFORMATION
  Report Type: 
  Country: JP (occurrence: JP)
  Receive Date: 20121106
  Receipt Date: 20121123
  Transmission Date: 20130627
  Serious: Yes (Other)
  Sender: FDA-Public Use
  Company Number: JP-B.I. PHARMACEUTICALS,INC./RIDGEFIELD-2012-BP-27221NB

PATIENT
  Age: 69 Year
  Sex: Male
  Weight: 68 kg

DRUGS (5)
  1. PRADAXA [Suspect]
     Indication: ATRIAL FIBRILLATION
     Dosage: 220 mg
     Route: 048
     Dates: start: 20121105
  2. MICARDIS [Concomitant]
     Indication: HYPERTENSION
     Dosage: 20 mg
     Route: 048
     Dates: start: 20091130
  3. HERBESSER R [Concomitant]
     Indication: PRINZMETAL ANGINA
     Dosage: 200 mg
     Route: 048
     Dates: start: 20040603
  4. JUVELA N [Concomitant]
     Indication: PRINZMETAL ANGINA
     Dosage: 200 mg
     Route: 048
     Dates: start: 20040603
  5. LOCHOL [Concomitant]
     Indication: DYSLIPIDAEMIA
     Dosage: 30 mg
     Route: 048

REACTIONS (1)
  - Anaphylactic reaction [Not Recovered/Not Resolved]
